FAERS Safety Report 24622702 (Version 3)
Quarter: 2024Q4

REPORT INFORMATION
  Report Type: Spontaneous
  Country: FR (occurrence: FR)
  Receive Date: 20241115
  Receipt Date: 20241221
  Transmission Date: 20250115
  Serious: Yes (Other)
  Sender: AUROBINDO
  Company Number: FR-Merck Healthcare KGaA-2024057174

PATIENT
  Age: 84 Year
  Sex: Female

DRUGS (6)
  1. LANSOPRAZOLE [Interacting]
     Active Substance: LANSOPRAZOLE
     Indication: Gastric pH decreased
     Dosage: UNK
     Route: 065
  2. CORDARONE [Suspect]
     Active Substance: AMIODARONE HYDROCHLORIDE
     Indication: Arrhythmia
     Dosage: 1 DOSAGE FORM
     Route: 065
  3. CORDARONE [Suspect]
     Active Substance: AMIODARONE HYDROCHLORIDE
     Dosage: 1 DOSAGE FORM
     Route: 065
  4. LEVOTHYROXINE [Interacting]
     Active Substance: LEVOTHYROXINE
     Indication: Hypothyroidism
     Dosage: 125 MICROGRAM, ONCE A DAY
     Route: 065
  5. FLECAINIDE [Suspect]
     Active Substance: FLECAINIDE
     Indication: Product used for unknown indication
     Dosage: UNK
     Route: 065
  6. ELIQUIS [Concomitant]
     Active Substance: APIXABAN
     Indication: Product used for unknown indication
     Dosage: UNK
     Route: 065

REACTIONS (13)
  - Arrhythmia [Unknown]
  - Blood thyroid stimulating hormone increased [Unknown]
  - Dysgeusia [Unknown]
  - Fatigue [Unknown]
  - Feeling cold [Unknown]
  - Gastric pH decreased [Unknown]
  - Hot flush [Unknown]
  - Tremor [Unknown]
  - Contraindicated product administered [Unknown]
  - Dizziness [Recovering/Resolving]
  - Myalgia [Unknown]
  - Blood thyroid stimulating hormone decreased [Unknown]
  - Potentiating drug interaction [Unknown]
